FAERS Safety Report 8304881-0 (Version None)
Quarter: 2012Q2

REPORT INFORMATION
  Report Type: 
  Country: None (occurrence: None)
  Receive Date: 20120423
  Receipt Date: 20120416
  Transmission Date: 20120825
  Serious: Yes (Other)
  Sender: FDA-Public Use
  Company Number: CA-ROCHE-1060381

PATIENT
  Sex: Male
  Weight: 119.86 kg

DRUGS (6)
  1. IMODIUM [Concomitant]
  2. INSULIN [Concomitant]
  3. AVASTIN [Suspect]
     Indication: COLORECTAL CANCER
     Route: 042
     Dates: start: 20110518
  4. GAVISCON ACID [Concomitant]
  5. PANTOPRAZOLE [Concomitant]
  6. PROCHLORPERAZINE [Concomitant]

REACTIONS (3)
  - POLLAKIURIA [None]
  - THIRST [None]
  - HYPERGLYCAEMIA [None]
